FAERS Safety Report 23972768 (Version 1)
Quarter: 2024Q2

REPORT INFORMATION
  Report Type: Report from Study
  Country: PH (occurrence: PH)
  Receive Date: 20240613
  Receipt Date: 20240613
  Transmission Date: 20240716
  Serious: Yes (Hospitalization, Other)
  Sender: FDA-Public Use
  Company Number: PH-TAKEDA-2024TUS020416

PATIENT
  Age: 31 Year
  Sex: Female

DRUGS (1)
  1. ADCETRIS [Suspect]
     Active Substance: BRENTUXIMAB VEDOTIN
     Indication: Hodgkin^s disease refractory
     Dosage: UNK UNK, Q3WEEKS
     Route: 042

REACTIONS (4)
  - Pneumonia [Recovered/Resolved]
  - Tachypnoea [Recovered/Resolved]
  - White blood cell count increased [Recovered/Resolved]
  - Neoplasm progression [Recovering/Resolving]
